FAERS Safety Report 23520537 (Version 2)
Quarter: 2024Q1

REPORT INFORMATION
  Report Type: Spontaneous
  Country: CN (occurrence: CN)
  Receive Date: 20240214
  Receipt Date: 20240216
  Transmission Date: 20240410
  Serious: Yes (Life-Threatening, Other)
  Sender: FDA-Public Use
  Company Number: CN-AstraZeneca-2024-131536

PATIENT

DRUGS (1)
  1. METOPROLOL SUCCINATE [Suspect]
     Active Substance: METOPROLOL SUCCINATE
     Indication: Product used for unknown indication
     Dosage: 47.5MG UNKNOWN
     Route: 048

REACTIONS (7)
  - Dyspnoea [Unknown]
  - Heart rate decreased [Unknown]
  - Arrhythmia [Unknown]
  - Drug hypersensitivity [Unknown]
  - Prescription drug used without a prescription [Unknown]
  - Memory impairment [Unknown]
  - Hypoacusis [Unknown]
